FAERS Safety Report 9920117 (Version 7)
Quarter: 2015Q1

REPORT INFORMATION
  Report Type: Spontaneous
  Country: US (occurrence: US)
  Receive Date: 20140224
  Receipt Date: 20150319
  Transmission Date: 20150721
  Serious: Yes (Hospitalization, Other)
  Sender: FDA-Public Use
  Company Number: US-009507513-1402USA009375

PATIENT
  Sex: Female

DRUGS (15)
  1. TRAMADOL HYDROCHLORIDE. [Concomitant]
     Active Substance: TRAMADOL HYDROCHLORIDE
     Indication: PAIN
     Dosage: 50 MG, BID PRN
     Route: 048
  2. IRON SUCROSE [Concomitant]
     Active Substance: IRON SUCROSE
     Dosage: 100 MG/5 ML IV MONTHLY
     Dates: start: 1982
  3. FOSAMAX [Suspect]
     Active Substance: ALENDRONATE SODIUM
     Indication: OSTEOPENIA
     Dosage: 70 MG, QW
     Route: 048
     Dates: start: 1999, end: 20080606
  4. K-DUR [Concomitant]
     Active Substance: POTASSIUM CHLORIDE
     Dosage: 20 MEQ, QD
     Route: 048
  5. ALENDRONATE SODIUM. [Suspect]
     Active Substance: ALENDRONATE SODIUM
     Indication: OSTEOPENIA
     Dosage: 70 MG, QW
     Route: 048
     Dates: start: 20080606, end: 20101029
  6. CALCIUM (UNSPECIFIED) [Concomitant]
     Active Substance: CALCIUM
     Indication: OSTEOPENIA
     Dosage: 2000 IU, QD
     Dates: start: 1985
  7. COUMADIN [Concomitant]
     Active Substance: WARFARIN SODIUM
     Dosage: 2 MG, UNK
     Route: 048
     Dates: start: 1985
  8. SYNTHROID [Concomitant]
     Active Substance: LEVOTHYROXINE SODIUM
     Indication: HYPOTHYROIDISM
     Dosage: 75 MICRO-G/MICRO-L, QD
     Route: 048
     Dates: start: 20080613
  9. FOSAMAX [Suspect]
     Active Substance: ALENDRONATE SODIUM
     Indication: OSTEOPOROSIS
     Dosage: 10 MG, QD
     Route: 048
  10. VITAMIN D [Concomitant]
     Active Substance: CHOLECALCIFEROL
     Indication: OSTEOPENIA
     Dosage: 1000 IU, QD
     Route: 048
     Dates: start: 1985
  11. CALCITRIOL. [Concomitant]
     Active Substance: CALCITRIOL
     Dosage: 0.25 MICRO-G/MICRO-L, QD
     Route: 048
  12. ALENDRONATE SODIUM. [Suspect]
     Active Substance: ALENDRONATE SODIUM
     Indication: OSTEOPOROSIS
     Dosage: 10 MG, QD
     Route: 048
  13. MERCAPTOPURINE. [Concomitant]
     Active Substance: MERCAPTOPURINE
     Indication: CROHN^S DISEASE
     Dosage: 50 MG, (1/2 TAB) QOD
     Route: 048
     Dates: start: 2004
  14. VITAMIN B12 [Concomitant]
     Active Substance: CYANOCOBALAMIN
     Dosage: 1000 MICRO-G/MICRO-L, QM
     Route: 030
     Dates: start: 1985
  15. HUMIRA [Concomitant]
     Active Substance: ADALIMUMAB
     Indication: CROHN^S DISEASE
     Dosage: 40 MG PER 0.8 ML, QOW
     Route: 058

REACTIONS (18)
  - Hypokalaemia [Unknown]
  - Open reduction of fracture [Unknown]
  - Cholecystectomy [Unknown]
  - Transfusion [Unknown]
  - Tonsillectomy [Unknown]
  - Appendicectomy [Unknown]
  - Bursitis [Unknown]
  - Goitre [Unknown]
  - Chondropathy [Unknown]
  - Haemorrhagic anaemia [Unknown]
  - Throat tightness [Unknown]
  - Varicose vein [Unknown]
  - Restless legs syndrome [Unknown]
  - Adverse drug reaction [Unknown]
  - Femur fracture [Recovered/Resolved]
  - Leukopenia [Unknown]
  - Hysterectomy [Unknown]
  - Bone disorder [Unknown]

NARRATIVE: CASE EVENT DATE: 20120113
